FAERS Safety Report 19062335 (Version 1)
Quarter: 2021Q1

REPORT INFORMATION
  Report Type: Spontaneous
  Country: FR (occurrence: FR)
  Receive Date: 20210326
  Receipt Date: 20210326
  Transmission Date: 20210420
  Serious: Yes (Hospitalization)
  Sender: FDA-Public Use
  Company Number: FR-PFIZER INC-2021282415

PATIENT
  Age: 62 Year
  Sex: Female

DRUGS (6)
  1. METHYLPREDNISOLONE. [Suspect]
     Active Substance: METHYLPREDNISOLONE
     Dates: start: 20210218
  2. AMITRIPTYLINE [Suspect]
     Active Substance: AMITRIPTYLINE
     Dosage: UNK
     Dates: start: 20210218
  3. TINZAPARINE SODIQUE [Suspect]
     Active Substance: TINZAPARIN SODIUM
     Dosage: UNK
     Dates: start: 20210218
  4. AZITHROMYCINE [Suspect]
     Active Substance: AZITHROMYCIN
     Dosage: UNK
     Dates: start: 20210218
  5. PARACETAMOL [Suspect]
     Active Substance: ACETAMINOPHEN
     Dosage: UNK
     Dates: start: 20210218
  6. CEFOTAXIME [Suspect]
     Active Substance: CEFOTAXIME SODIUM
     Dosage: UNK
     Dates: start: 20210218

REACTIONS (2)
  - Hepatocellular injury [Not Recovered/Not Resolved]
  - Jaundice [Not Recovered/Not Resolved]

NARRATIVE: CASE EVENT DATE: 20210218
